FAERS Safety Report 7999532-9 (Version None)
Quarter: 2011Q4

REPORT INFORMATION
  Report Type: 
  Country: None (occurrence: None)
  Receive Date: 20111221
  Receipt Date: 20111214
  Transmission Date: 20120403
  Serious: Yes (Hospitalization)
  Sender: FDA-Public Use
  Company Number: US-AMGEN-USASP2011062052

PATIENT
  Age: 49 Year
  Sex: Male

DRUGS (5)
  1. HYDROCORTISONE VALERATE [Concomitant]
  2. PROTONIX [Concomitant]
  3. ENBREL [Suspect]
     Indication: PSORIASIS
     Dosage: 50 MG, QWK
     Dates: start: 20060101
  4. CELEBREX [Concomitant]
  5. CLOBETASOL PROPIONATE [Concomitant]

REACTIONS (1)
  - CEREBROVASCULAR ACCIDENT [None]
